FAERS Safety Report 4747267-8 (Version None)
Quarter: 2005Q3

REPORT INFORMATION
  Report Type: 
  Country: None (occurrence: None)
  Receive Date: 20050816
  Receipt Date: 20050803
  Transmission Date: 20060218
  Serious: No
  Sender: FDA-Public Use
  Company Number: 215291

PATIENT
  Age: 59 Year
  Sex: Female
  Weight: 79.8 kg

DRUGS (14)
  1. XOLAIR [Suspect]
     Indication: ASTHMA
     Dosage: 375 MG, Q2W, SUBCUTANEOUS
     Route: 058
     Dates: start: 20031105, end: 20050705
  2. SINGULAIR [Concomitant]
  3. ADVAIR DISKUS 100/50 [Concomitant]
  4. NEBULIZER TREATMENT (UNK INGREDIENTS) (RESPIRATORY TREATMENTS AND DEVI [Concomitant]
  5. FLONASE [Concomitant]
  6. STEROIDS (UNK INGREDIENTS) (STEROID NOS) [Concomitant]
  7. XOPONEX (LEVALBUTEROL HYDROCHLORIDE) [Concomitant]
  8. ATROVENT SOLUTION (IPRATROPIUM BROMIDE) [Concomitant]
  9. COMBIVENT (ALBUTEROL SULFATE, ALBUTEROL, IPRATROPIUM BROMIDE) [Concomitant]
  10. CARDIZEM CD [Concomitant]
  11. HYDROCHLOROTHIAZIDE [Concomitant]
  12. ZYRTEC [Concomitant]
  13. AMBIEN [Concomitant]
  14. DIFLUCAN [Concomitant]

REACTIONS (5)
  - ARTHRALGIA [None]
  - DERMATITIS CONTACT [None]
  - HYPERSENSITIVITY [None]
  - LATEX ALLERGY [None]
  - PSORIASIS [None]
